FAERS Safety Report 18558692 (Version 1)
Quarter: 2020Q4

REPORT INFORMATION
  Report Type: Report from Study
  Country: ES (occurrence: ES)
  Receive Date: 20201130
  Receipt Date: 20201130
  Transmission Date: 20210114
  Serious: Yes (Hospitalization)
  Sender: FDA-Public Use
  Company Number: ES-TEVA-2020-ES-1852631

PATIENT
  Age: 65 Year
  Sex: Female

DRUGS (6)
  1. OMEPRAZOL [Concomitant]
     Active Substance: OMEPRAZOLE
     Dosage: || DOSE UNIT FREQUENCY: 40 MG-MILLIGRAMS
     Route: 048
     Dates: start: 201412
  2. TROMALYT 300, CAPSULAS DURAS DE LIBERACION PROLONGADA , 28 CAPSULAS [Concomitant]
     Dosage: || DOSE UNIT FREQUENCY: 300 MG-MILLIGRAMS
     Route: 048
     Dates: end: 20150515
  3. SIMVASTATINA [Concomitant]
     Active Substance: SIMVASTATIN
     Indication: DYSLIPIDAEMIA
     Dosage: DOSE UNIT FREQUENCY: 20 MG-MILLIGRAMS
     Route: 048
     Dates: start: 201409
  4. LEVOFLOXACINO [Suspect]
     Active Substance: LEVOFLOXACIN
     Indication: RESPIRATORY TRACT INFECTION
     Dosage: DOSE UNIT FREQUENCY: 500 MG-MILLIGRAMS
     Route: 048
     Dates: start: 20150504, end: 20150514
  5. PARACETAMOL [Concomitant]
     Active Substance: ACETAMINOPHEN
     Dosage: || DOSE UNIT FREQUENCY: 2 G-GRAMS
     Route: 048
  6. DACORTIN 2,5 MG COMPRIMIDOS, 30 COMPRIMIDOS [Concomitant]
     Indication: SYSTEMIC LUPUS ERYTHEMATOSUS
     Dosage: || DOSE UNIT FREQUENCY: 2.5 MG-MILLIGRAMS
     Route: 048
     Dates: start: 201412

REACTIONS (1)
  - Rash erythematous [Recovered/Resolved]

NARRATIVE: CASE EVENT DATE: 20150512
